FAERS Safety Report 13230903 (Version 5)
Quarter: 2017Q2

REPORT INFORMATION
  Report Type: Report from Study
  Country: CA (occurrence: CA)
  Receive Date: 20170214
  Receipt Date: 20170425
  Transmission Date: 20170830
  Serious: Yes (Hospitalization, Other)
  Sender: FDA-Public Use
  Company Number: CA-AEGERION PHARMACEUTICAL INC-AEGR003003

PATIENT

DRUGS (5)
  1. JUXTAPID [Suspect]
     Active Substance: LOMITAPIDE MESYLATE
     Dosage: 5 MG, QD, AT NIGHT
     Route: 048
     Dates: start: 20170302, end: 20170308
  2. JUXTAPID [Suspect]
     Active Substance: LOMITAPIDE MESYLATE
     Dosage: 5 MG, QD, AT NIGHT
     Route: 048
     Dates: start: 20170310, end: 20170410
  3. JUXTAPID [Suspect]
     Active Substance: LOMITAPIDE MESYLATE
     Dosage: 5 MG, QD, AT NIGHT
     Route: 048
     Dates: start: 20170224, end: 20170227
  4. JUXTAPID [Suspect]
     Active Substance: LOMITAPIDE MESYLATE
     Indication: TYPE IIA HYPERLIPIDAEMIA
     Dosage: 10 MG, QD
     Route: 048
     Dates: start: 20160706, end: 201701
  5. JUXTAPID [Suspect]
     Active Substance: LOMITAPIDE MESYLATE
     Dosage: 5 MG, QD, AT NIGHT
     Route: 048
     Dates: start: 20170412

REACTIONS (9)
  - Gastrointestinal pain [Unknown]
  - Asthenia [Recovering/Resolving]
  - Gastric ulcer haemorrhage [Unknown]
  - Gastrointestinal haemorrhage [Unknown]
  - Fluid retention [Unknown]
  - Weight decreased [Recovering/Resolving]
  - Depressed level of consciousness [Unknown]
  - Cardiogenic shock [Unknown]
  - Therapy cessation [Unknown]

NARRATIVE: CASE EVENT DATE: 201701
